FAERS Safety Report 20110686 (Version 1)
Quarter: 2021Q4

REPORT INFORMATION
  Report Type: Spontaneous
  Country: FR (occurrence: FR)
  Receive Date: 20211124
  Receipt Date: 20211124
  Transmission Date: 20220303
  Serious: Yes (Hospitalization)
  Sender: FDA-Public Use
  Company Number: None

PATIENT
  Age: 75 Year
  Sex: Male

DRUGS (14)
  1. LANSOPRAZOLE [Suspect]
     Active Substance: LANSOPRAZOLE
     Indication: Product used for unknown indication
     Dosage: 30 MG , THERAPY START DATE : ASKU
     Route: 048
     Dates: end: 20211027
  2. INDAPAMIDE [Suspect]
     Active Substance: INDAPAMIDE
     Indication: Product used for unknown indication
     Dosage: THERAPY START DATE : ASKU , 1.5 MG
     Route: 048
     Dates: end: 20211027
  3. DAIVOBET [Concomitant]
     Active Substance: BETAMETHASONE DIPROPIONATE\CALCIPOTRIENE
  4. BIMATOPROST\TIMOLOL [Concomitant]
     Active Substance: BIMATOPROST\TIMOLOL
  5. DEXERYL [Concomitant]
  6. ZOPICLONE [Concomitant]
     Active Substance: ZOPICLONE
  7. DOXYLIS [Concomitant]
     Dosage: SCORED TABLET
  8. ALLOPURINOL [Concomitant]
     Active Substance: ALLOPURINOL
  9. LACTITOL [Concomitant]
     Active Substance: LACTITOL
  10. COVERAM [Concomitant]
     Active Substance: AMLODIPINE\PERINDOPRIL
     Dosage: STRENGTH : 10 MG / 10 MG
  11. EBASTINE [Concomitant]
     Active Substance: EBASTINE
  12. LEVOTHYROXINE [Concomitant]
     Active Substance: LEVOTHYROXINE
     Dosage: SCORED TABLET
  13. CLOBETASOL PROPIONATE [Concomitant]
     Active Substance: CLOBETASOL PROPIONATE
  14. BETAMETHASONE DIPROPIONATE [Concomitant]
     Active Substance: BETAMETHASONE DIPROPIONATE

REACTIONS (3)
  - Fall [Recovering/Resolving]
  - Hyponatraemia [Recovering/Resolving]
  - Feeling drunk [Recovered/Resolved]

NARRATIVE: CASE EVENT DATE: 20211025
